FAERS Safety Report 9681419 (Version 1)
Quarter: 2013Q4

REPORT INFORMATION
  Report Type: Spontaneous
  Country: AU (occurrence: None)
  Receive Date: 20131107
  Receipt Date: 20131107
  Transmission Date: 20140711
  Serious: Yes (Other)
  Sender: FDA-Public Use
  Company Number: INT_00322_2013

PATIENT
  Age: 58 Year
  Sex: Female

DRUGS (4)
  1. PACLITAXEL [Suspect]
     Indication: CHEMOTHERAPY
     Dosage: 175 MG/M2; FIRST CYCLE
     Route: 042
  2. CARBOPLATIN (CARBOPLATIN) [Suspect]
     Indication: CHEMOTHERAPY
     Dosage: 600 MG FIRST CYCLE
     Route: 042
  3. DEXAMETHASONE (DEXAMETHASONE) [Suspect]
     Indication: PROPHYLAXIS OF NAUSEA AND VOMITING
     Dosage: 40 MG (PREMEDICATION)
  4. DEXAMETHASONE (DEXAMETHASONE) [Suspect]
     Indication: PROPHYLAXIS OF NAUSEA AND VOMITING
     Dosage: 40 MG (PREMEDICATION)

REACTIONS (1)
  - Pyomyositis [None]
